FAERS Safety Report 22369236 (Version 1)
Quarter: 2023Q2

REPORT INFORMATION
  Report Type: Spontaneous
  Country: HR (occurrence: HR)
  Receive Date: 20230525
  Receipt Date: 20230525
  Transmission Date: 20230721
  Serious: Yes (Hospitalization, Other)
  Sender: FDA-Public Use
  Company Number: HR-BAYER-2023A073266

PATIENT
  Sex: Male

DRUGS (10)
  1. XARELTO [Suspect]
     Active Substance: RIVAROXABAN
     Indication: Product used for unknown indication
     Dosage: 20 MG
     Route: 048
  2. METOPROLOL [Concomitant]
     Active Substance: METOPROLOL
     Dosage: 200 MG
  3. SACUBITRIL [Concomitant]
     Active Substance: SACUBITRIL
     Dosage: 49 MG, BID
  4. VALSARTAN [Concomitant]
     Active Substance: VALSARTAN
     Dosage: 51 MG, QD
  5. EPLERONE [Concomitant]
     Dosage: 25 MG
  6. EMPAGLIFLOZIN [Concomitant]
     Active Substance: EMPAGLIFLOZIN
     Dosage: 10 MG
  7. FUROSEMIDE [Concomitant]
     Active Substance: FUROSEMIDE
     Dosage: 2 DF
  8. POTASSIUM BICARBONATE;POTASSIUM CITRATE [Concomitant]
  9. ATORVASTATIN [Concomitant]
     Active Substance: ATORVASTATIN
     Dosage: 80 MG
  10. METHIMAZOLE [Concomitant]
     Active Substance: METHIMAZOLE
     Dosage: 10 MG

REACTIONS (5)
  - Cardiac failure chronic [Unknown]
  - Generalised oedema [Unknown]
  - Ventricular tachyarrhythmia [Unknown]
  - Atrial fibrillation [Unknown]
  - Chronic kidney disease [Unknown]
